FAERS Safety Report 25874573 (Version 1)
Quarter: 2025Q4

REPORT INFORMATION
  Report Type: Spontaneous
  Country: US (occurrence: None)
  Receive Date: 20251002
  Receipt Date: 20251002
  Transmission Date: 20260117
  Serious: No
  Sender: FDA-CTU
  Company Number: None

PATIENT
  Sex: Female

DRUGS (1)
  1. PIQRAY [Suspect]
     Active Substance: ALPELISIB
     Indication: Birth mark
     Dosage: FREQUENCY : DAILY;?
     Route: 048
     Dates: start: 20250904

REACTIONS (3)
  - Rash [None]
  - Eyelid rash [None]
  - Mouth ulceration [None]
